FAERS Safety Report 9820833 (Version 1)
Quarter: 2014Q1

REPORT INFORMATION
  Report Type: Spontaneous
  Country: US (occurrence: None)
  Receive Date: 20140114
  Receipt Date: 20140114
  Transmission Date: 20141002
  Serious: Yes (Life-Threatening, Hospitalization)
  Sender: FDA-Public Use
  Company Number: None

PATIENT
  Age: 52 Year
  Sex: Female
  Weight: 45.36 kg

DRUGS (1)
  1. ELMIRON [Suspect]
     Indication: PAIN
     Dosage: TAKEN BY MOUTH
     Dates: start: 20130918, end: 20131014

REACTIONS (1)
  - Blood pressure increased [None]
